FAERS Safety Report 21065645 (Version 1)
Quarter: 2022Q3

REPORT INFORMATION
  Report Type: Report from Study
  Country: US (occurrence: US)
  Receive Date: 20220711
  Receipt Date: 20220711
  Transmission Date: 20221027
  Serious: Yes (Other)
  Sender: FDA-Public Use
  Company Number: US-UCBSA-2022037536

PATIENT
  Sex: Male

DRUGS (4)
  1. LACOSAMIDE [Suspect]
     Active Substance: LACOSAMIDE
     Indication: Seizure
     Dosage: 150 MILLIGRAM, 2X/DAY (BID)
  2. NAYZILAM [Suspect]
     Active Substance: MIDAZOLAM
     Indication: Seizure
     Dosage: 5 MG
     Route: 045
  3. ATORVASTATIN [Concomitant]
     Active Substance: ATORVASTATIN
     Indication: Product used for unknown indication
  4. DILANTIN [Concomitant]
     Active Substance: PHENYTOIN
     Indication: Epilepsy

REACTIONS (6)
  - Confusional state [Unknown]
  - Disorientation [Unknown]
  - Dizziness [Unknown]
  - Vision blurred [Recovering/Resolving]
  - Feeling drunk [Unknown]
  - Disturbance in attention [Unknown]
